FAERS Safety Report 23723917 (Version 2)
Quarter: 2025Q1

REPORT INFORMATION
  Report Type: Report from Study
  Country: CA (occurrence: CA)
  Receive Date: 20240409
  Receipt Date: 20250226
  Transmission Date: 20250409
  Serious: Yes (Other)
  Sender: TAKEDA
  Company Number: CA-TAKEDA-2018TUS029491

PATIENT
  Sex: Male
  Weight: 106.58 kg

DRUGS (2)
  1. VEDOLIZUMAB [Suspect]
     Active Substance: VEDOLIZUMAB
     Indication: Colitis ulcerative
  2. VEDOLIZUMAB [Suspect]
     Active Substance: VEDOLIZUMAB
     Dosage: 300 MILLIGRAM, Q4WEEKS
     Dates: start: 2022

REACTIONS (7)
  - Colitis ulcerative [Unknown]
  - Frequent bowel movements [Unknown]
  - Diarrhoea [Unknown]
  - Therapeutic product effect decreased [Unknown]
  - Off label use [Unknown]
  - Impaired work ability [Unknown]
  - Social problem [Unknown]

NARRATIVE: CASE EVENT DATE: 20180101
